FAERS Safety Report 5822742-3 (Version None)
Quarter: 2008Q3

REPORT INFORMATION
  Report Type: 
  Country: None (occurrence: None)
  Receive Date: 20080725
  Receipt Date: 20070918
  Transmission Date: 20090109
  Serious: No
  Sender: FDA-Public Use
  Company Number: US-AMGEN-KDL243831

PATIENT
  Sex: Female

DRUGS (8)
  1. EPOGEN [Suspect]
     Indication: RENAL FAILURE CHRONIC
     Route: 058
     Dates: start: 20070914, end: 20070916
  2. ANTIBIOTICS [Suspect]
  3. CELLCEPT [Concomitant]
  4. COUMADIN [Concomitant]
  5. PREDNISONE TAB [Concomitant]
  6. LISINOPRIL [Concomitant]
  7. VITAMIN B-12 [Concomitant]
  8. IRON [Concomitant]

REACTIONS (8)
  - ASTHENIA [None]
  - HEART RATE INCREASED [None]
  - NASOPHARYNGITIS [None]
  - NECK PAIN [None]
  - OROPHARYNGEAL PAIN [None]
  - PAIN IN EXTREMITY [None]
  - PHARYNGEAL OEDEMA [None]
  - RESPIRATORY RATE INCREASED [None]
